FAERS Safety Report 14662261 (Version 4)
Quarter: 2018Q2

REPORT INFORMATION
  Report Type: Report from Study
  Country: ZA (occurrence: ZA)
  Receive Date: 20180321
  Receipt Date: 20180521
  Transmission Date: 20180711
  Serious: Yes (Hospitalization, Other)
  Sender: FDA-Public Use
  Company Number: ZA-BRISTOL-MYERS SQUIBB COMPANY-BMS-2018-009653

PATIENT
  Age: 61 Year
  Sex: Female

DRUGS (1)
  1. ABATACEPT [Suspect]
     Active Substance: ABATACEPT
     Indication: RHEUMATOID ARTHRITIS
     Dosage: 125 MG, QWK
     Route: 058
     Dates: start: 20171214

REACTIONS (8)
  - Gallbladder disorder [Recovered/Resolved]
  - Arthralgia [Unknown]
  - Abdominal pain [Unknown]
  - Limb discomfort [Unknown]
  - Nasopharyngitis [Recovered/Resolved]
  - Cholelithiasis [Unknown]
  - Tarsal tunnel syndrome [Unknown]
  - Back pain [Unknown]

NARRATIVE: CASE EVENT DATE: 20180204
